FAERS Safety Report 9167593 (Version 1)
Quarter: 2013Q1

REPORT INFORMATION
  Report Type: Spontaneous
  Country: JP (occurrence: None)
  Receive Date: 20130307
  Receipt Date: 20130307
  Transmission Date: 20140127
  Serious: Yes (Other)
  Sender: FDA-Public Use
  Company Number: TCI2012A06670

PATIENT
  Age: 77 Year
  Sex: Male

DRUGS (6)
  1. ROZEREM [Suspect]
     Indication: INSOMNIA
     Dosage: 8 MG (8 MG, 1 IN 1 D)
     Route: 048
     Dates: start: 20120724, end: 20121108
  2. ARICEPT D (DONEPEZIL HYDROCHLORIDE) [Concomitant]
  3. MEMARY (MEMANTINE HYDROCHLORIDE) [Concomitant]
  4. BENZALIN (NITRAZEPAM) [Concomitant]
  5. GRAMALIL (TIAPRIDE HYDROCHLORIDE) [Concomitant]
  6. CYMBALTA (DULOXETINE HYDROCHLORIDE) [Concomitant]

REACTIONS (5)
  - Loss of consciousness [None]
  - Tremor [None]
  - Blood pressure increased [None]
  - Body temperature decreased [None]
  - Unresponsive to stimuli [None]
